FAERS Safety Report 9734183 (Version 1)
Quarter: 2013Q4

REPORT INFORMATION
  Report Type: Report from Study
  Country: CA (occurrence: CA)
  Receive Date: 20131205
  Receipt Date: 20131205
  Transmission Date: 20140711
  Serious: Yes (Hospitalization)
  Sender: FDA-Public Use
  Company Number: CA-TEVA-448342USA

PATIENT
  Age: 1 Year
  Sex: Male
  Weight: 9 kg

DRUGS (7)
  1. LESTAURTINIB [Suspect]
     Indication: LYMPHOCYTIC LEUKAEMIA
     Dates: end: 20131124
  2. CYTARABINE [Suspect]
     Indication: LYMPHOCYTIC LEUKAEMIA
     Route: 037
     Dates: end: 20131119
  3. DEXAMETHASONE [Suspect]
     Indication: LYMPHOCYTIC LEUKAEMIA
     Dates: start: 20130211, end: 20131123
  4. HYDROCORTISONE [Suspect]
     Indication: LYMPHOCYTIC LEUKAEMIA
     Route: 037
     Dates: start: 20130211, end: 20131119
  5. METHOTREXATE [Suspect]
     Indication: LYMPHOCYTIC LEUKAEMIA
     Route: 037
     Dates: start: 20130211, end: 20131119
  6. VINCRISTINE [Suspect]
     Indication: LYMPHOCYTIC LEUKAEMIA
     Dates: start: 20130211, end: 20131119
  7. MERCAPTOPURINE [Suspect]
     Dates: end: 20131119

REACTIONS (2)
  - Diarrhoea [Recovering/Resolving]
  - Gastroenteritis [Recovering/Resolving]
